FAERS Safety Report 4923478-3 (Version None)
Quarter: 2006Q1

REPORT INFORMATION
  Report Type: 
  Country: None (occurrence: None)
  Receive Date: 20060227
  Receipt Date: 20060119
  Transmission Date: 20060701
  Serious: Yes (Hospitalization)
  Sender: FDA-Public Use
  Company Number: FR-AVENTIS-200610625GDDC

PATIENT
  Age: 59 Year
  Sex: Female
  Weight: 58 kg

DRUGS (3)
  1. TAXOTERE [Suspect]
     Indication: BREAST CANCER
     Route: 042
     Dates: start: 20051121, end: 20060106
  2. MILNACIPRAN [Concomitant]
     Dates: start: 20030101
  3. BROMAZEPAM [Concomitant]
     Dates: start: 20030101

REACTIONS (15)
  - ABDOMINAL PAIN [None]
  - ASCITES [None]
  - BACTERIA STOOL IDENTIFIED [None]
  - BLOOD CALCIUM DECREASED [None]
  - BLOOD CHLORIDE DECREASED [None]
  - BLOOD GLUCOSE INCREASED [None]
  - BLOOD LACTATE DEHYDROGENASE INCREASED [None]
  - BLOOD POTASSIUM DECREASED [None]
  - CONSTIPATION [None]
  - GENERAL PHYSICAL HEALTH DETERIORATION [None]
  - HAEMOGLOBIN DECREASED [None]
  - HYPONATRAEMIA [None]
  - ILEUS PARALYTIC [None]
  - PLEURAL EFFUSION [None]
  - PYREXIA [None]
